FAERS Safety Report 10395934 (Version 1)
Quarter: 2014Q1

REPORT INFORMATION
  Report Type: Spontaneous
  Country: US (occurrence: None)
  Receive Date: 20130524
  Receipt Date: 20130524
  Transmission Date: 20141002
  Serious: Yes (Other)
  Sender: FDA-Public Use
  Company Number: PHEH2012US022863

PATIENT
  Age: 49 Year
  Sex: Male

DRUGS (6)
  1. GILENYA (FINGOLIMOD) CAPSULE, 0.5MG [Suspect]
     Indication: MULTIPLE SCLEROSIS
     Route: 048
     Dates: start: 20120328
  2. CICLOBENZAPRINA (CYCLOBENZAPRINE HYDROCHLORIDE) [Concomitant]
  3. LORAZEPAM [Concomitant]
  4. NALTREXONE [Concomitant]
  5. PANTOPRAZOLE [Concomitant]
  6. FIORICET (BUTALBITAL, CAFFIENE, PARACETAMOL) [Concomitant]

REACTIONS (2)
  - White blood cell count decreased [None]
  - Inappropriate schedule of drug administration [None]
